FAERS Safety Report 8666594 (Version 3)
Quarter: 2012Q4

REPORT INFORMATION
  Report Type: 
  Country: US (occurrence: US)
  Receive Date: 20120716
  Receipt Date: 20121002
  Transmission Date: 20130627
  Serious: Yes (Other)
  Sender: FDA-Public Use
  Company Number: US-PFIZER INC-2012167001

PATIENT
  Age: 57 Year
  Sex: Male

DRUGS (13)
  1. GEODON [Suspect]
     Indication: MOOD ALTERED
     Dosage: 80 mg, 2x/day
     Route: 048
     Dates: start: 20040630
  2. GEODON [Suspect]
     Dosage: 60 mg, 2x/day
     Route: 048
  3. GEODON [Suspect]
     Dosage: 240 mg, daily
     Route: 048
     Dates: start: 20060413
  4. GEODON [Suspect]
     Dosage: 160 mg, daily
     Route: 048
  5. DEPAKOTE ER [Concomitant]
     Dosage: 1000 mg at bedtime
  6. DEPAKOTE ER [Concomitant]
     Dosage: 1500 mg, UNK
  7. LEXAPRO [Concomitant]
     Dosage: 20 mg, daily
  8. KLONOPIN [Concomitant]
     Dosage: 0.5 mg, 2x/day
  9. KLONOPIN [Concomitant]
     Dosage: 1 mg, once in the afternoon
  10. ZOCOR [Concomitant]
     Dosage: 20 mg, once at bedtime
  11. WELLBUTRIN XL [Concomitant]
     Dosage: 300 mg, once in the morning
  12. WELLBUTRIN XL [Concomitant]
     Dosage: UNK (tapered off)
  13. AMBIEN [Concomitant]
     Dosage: 10 mg, daily
     Dates: start: 20060425

REACTIONS (2)
  - Cerebellar ataxia [Not Recovered/Not Resolved]
  - Amyotrophic lateral sclerosis [Unknown]
